FAERS Safety Report 10523845 (Version 1)
Quarter: 2014Q4

REPORT INFORMATION
  Report Type: Spontaneous
  Country: US (occurrence: None)
  Receive Date: 20141015
  Receipt Date: 20141015
  Transmission Date: 20150528
  Serious: Yes (Other)
  Sender: FDA-Public Use
  Company Number: None

PATIENT
  Age: 42 Year
  Sex: Female
  Weight: 74.39 kg

DRUGS (5)
  1. HYPERCARE [Suspect]
     Active Substance: ALCOHOL\ALUMINUM CHLORIDE
     Indication: HYPERHIDROSIS
     Dosage: YEARS
  2. AMBIEN [Concomitant]
     Active Substance: ZOLPIDEM TARTRATE
  3. ALEVE [Concomitant]
     Active Substance: NAPROXEN SODIUM
  4. TYLENOL COLD [Concomitant]
     Active Substance: ACETAMINOPHEN\CHLORPHENIRAMINE MALEATE\PHENYLPROPANOLAMINE
  5. ADDERALL [Concomitant]
     Active Substance: AMPHETAMINE ASPARTATE\AMPHETAMINE SULFATE\DEXTROAMPHETAMINE SACCHARATE\DEXTROAMPHETAMINE SULFATE

REACTIONS (1)
  - HER-2 positive breast cancer [None]

NARRATIVE: CASE EVENT DATE: 20140519
